FAERS Safety Report 5635916-1 (Version None)
Quarter: 2008Q1

REPORT INFORMATION
  Report Type: 
  Country: None (occurrence: None)
  Receive Date: 20080219
  Receipt Date: 20080208
  Transmission Date: 20080703
  Serious: Yes (Death, Hospitalization, Other)
  Sender: FDA-Public Use
  Company Number: 18279

PATIENT
  Age: 59 Year
  Sex: Male

DRUGS (2)
  1. CARBOPLATIN [Suspect]
     Indication: NON-SMALL CELL LUNG CANCER STAGE IIIA
  2. PACLITAXEL [Suspect]
     Indication: NON-SMALL CELL LUNG CANCER STAGE IIIA

REACTIONS (11)
  - CARDIAC ARREST [None]
  - DRUG TOXICITY [None]
  - HAEMOLYSIS [None]
  - HYPOXIA [None]
  - JAUNDICE [None]
  - LIVER ABSCESS [None]
  - LYMPHADENOPATHY MEDIASTINAL [None]
  - METABOLIC ACIDOSIS [None]
  - MORGANELLA INFECTION [None]
  - NEUTROPENIC SEPSIS [None]
  - SOMNOLENCE [None]
